FAERS Safety Report 9548755 (Version 1)
Quarter: 2013Q3

REPORT INFORMATION
  Report Type: Spontaneous
  Country: US (occurrence: None)
  Receive Date: 20130923
  Receipt Date: 20130923
  Transmission Date: 20140515
  Serious: Yes (Life-Threatening, Hospitalization)
  Sender: FDA-Public Use
  Company Number: None

PATIENT
  Age: 40 Year
  Sex: Female
  Weight: 79.38 kg

DRUGS (1)
  1. CLOMIPHENE [Suspect]
     Indication: INFERTILITY
     Dosage: 1 PILL
     Route: 048
     Dates: start: 20130609, end: 20130715

REACTIONS (4)
  - Activities of daily living impaired [None]
  - Cerebrovascular accident [None]
  - Impaired work ability [None]
  - Cerebral thrombosis [None]
